FAERS Safety Report 9134148 (Version 2)
Quarter: 2013Q2

REPORT INFORMATION
  Report Type: Spontaneous
  Country: US (occurrence: US)
  Receive Date: 20130304
  Receipt Date: 20130527
  Transmission Date: 20140414
  Serious: No
  Sender: FDA-Public Use
  Company Number: US-BIOGENIDEC-2013BI017898

PATIENT
  Age: 62 Year
  Sex: Female

DRUGS (2)
  1. TYSABRI [Suspect]
     Indication: MULTIPLE SCLEROSIS
     Route: 042
     Dates: start: 20120315
  2. BIOTENE [Concomitant]
     Indication: ROUTINE HEALTH MAINTENANCE

REACTIONS (4)
  - Oral pain [Recovered/Resolved with Sequelae]
  - Gait disturbance [Not Recovered/Not Resolved]
  - Drug hypersensitivity [Unknown]
  - Multiple sclerosis [Not Recovered/Not Resolved]
